FAERS Safety Report 7961286-X (Version None)
Quarter: 2011Q4

REPORT INFORMATION
  Report Type: 
  Country: None (occurrence: None)
  Receive Date: 20111207
  Receipt Date: 20111130
  Transmission Date: 20120403
  Serious: Yes (Death, Hospitalization, Other)
  Sender: FDA-Public Use
  Company Number: BR-US-EMD SERONO, INC.-7093239

PATIENT
  Sex: Female

DRUGS (7)
  1. ENOXAPARIN SODIUM [Concomitant]
  2. DONAREN [Concomitant]
  3. ENALAPRIL MALEATE [Concomitant]
  4. OMEPRAZOLE [Concomitant]
  5. REBIF [Suspect]
     Indication: SECONDARY PROGRESSIVE MULTIPLE SCLEROSIS
     Dates: start: 20011010
  6. SERTRALINE HYDROCHLORIDE [Concomitant]
  7. METFORMIN HYDROCHLORIDE [Concomitant]

REACTIONS (4)
  - RESPIRATORY TRACT INFECTION [None]
  - HYPERTENSION [None]
  - URINARY TRACT INFECTION [None]
  - DIABETES MELLITUS [None]
